FAERS Safety Report 10015921 (Version 1)
Quarter: 2014Q1

REPORT INFORMATION
  Report Type: Spontaneous
  Country: US (occurrence: US)
  Receive Date: 20140317
  Receipt Date: 20140317
  Transmission Date: 20141002
  Serious: Yes (Other)
  Sender: FDA-Public Use
  Company Number: US-JNJFOC-20140306420

PATIENT
  Age: 81 Year
  Sex: Female
  Weight: 58.06 kg

DRUGS (12)
  1. XARELTO [Suspect]
     Indication: CEREBROVASCULAR ACCIDENT PROPHYLAXIS
     Route: 048
     Dates: start: 20130820, end: 20130820
  2. XARELTO [Suspect]
     Indication: HEART RATE ABNORMAL
     Route: 048
     Dates: start: 20130820, end: 20130820
  3. METOPROLOL TARTRATE [Concomitant]
     Route: 065
  4. MAGNESIUM OXIDE [Concomitant]
     Route: 065
  5. DIGOXIN [Concomitant]
     Route: 065
  6. SIMVASTATIN [Concomitant]
     Route: 065
  7. ELIQUIS [Concomitant]
     Route: 065
  8. CALCIUM CITRATE + VITAMIN D [Concomitant]
     Route: 065
  9. CO-Q10 [Concomitant]
     Route: 065
  10. FOLIC ACID [Concomitant]
     Route: 065
  11. B 12 [Concomitant]
     Route: 065
  12. B-6 [Concomitant]
     Route: 065

REACTIONS (1)
  - Headache [Recovered/Resolved]
